FAERS Safety Report 6088966-8 (Version None)
Quarter: 2009Q1

REPORT INFORMATION
  Report Type: 
  Country: None (occurrence: None)
  Receive Date: 20090224
  Receipt Date: 20090217
  Transmission Date: 20090719
  Serious: Yes (Hospitalization)
  Sender: FDA-Public Use
  Company Number: FR-ASTRAZENECA-2009CG00396

PATIENT
  Age: 24244 Day
  Sex: Female

DRUGS (6)
  1. NEXIUM [Suspect]
     Route: 048
     Dates: start: 20090106, end: 20090112
  2. DI-ANTALVIC [Suspect]
     Route: 048
     Dates: start: 20090106, end: 20090112
  3. DICLOFENAC [Suspect]
     Route: 003
     Dates: start: 20090106, end: 20090121
  4. ARIXTRA [Concomitant]
     Indication: THROMBOPHLEBITIS
     Dates: start: 20090106
  5. DEXERYL [Concomitant]
     Dates: start: 20090106
  6. HAVLANE [Concomitant]
     Dates: start: 20090106

REACTIONS (3)
  - HAEMANGIOMA OF LIVER [None]
  - HEPATIC ENZYME INCREASED [None]
  - HEPATIC STEATOSIS [None]
